FAERS Safety Report 5266645-4 (Version None)
Quarter: 2007Q1

REPORT INFORMATION
  Report Type: 
  Country: None (occurrence: None)
  Receive Date: 20070312
  Receipt Date: 20070222
  Transmission Date: 20070707
  Serious: Yes (Other)
  Sender: FDA-Public Use
  Company Number: 8020383

PATIENT
  Age: 12 Year
  Sex: Female
  Weight: 40.1 kg

DRUGS (4)
  1. EQUASYM [Suspect]
     Dosage: 20 MG /D PO
     Route: 048
     Dates: end: 20060101
  2. EQUASYN [Suspect]
     Dosage: 30 MG /D PO
     Route: 048
  3. EQUASYM [Suspect]
     Dosage: 20 MG/D PO
     Route: 048
     Dates: start: 20060101
  4. MELATONIN [Concomitant]

REACTIONS (1)
  - URINARY RETENTION [None]
